FAERS Safety Report 5019419-3 (Version None)
Quarter: 2006Q2

REPORT INFORMATION
  Report Type: 
  Country: None (occurrence: None)
  Receive Date: 20060531
  Receipt Date: 20060511
  Transmission Date: 20061013
  Serious: Yes (Hospitalization)
  Sender: FDA-Public Use
  Company Number: ENT 2006-0068

PATIENT
  Age: 76 Year
  Sex: Female

DRUGS (9)
  1. COMTESS (ENTACAPONE) [Suspect]
     Indication: PARKINSON'S DISEASE
     Dosage: 1200 MG (200 MG, 6 IN 1 D)
     Dates: start: 20051201
  2. KARDOPAL (LEVODOPA, CARBIDOPA) [Concomitant]
  3. SINEMET DEPOT [Concomitant]
  4. ATACAND [Concomitant]
  5. THYROXIN [Concomitant]
  6. PULMICORT [Concomitant]
  7. SEREVENT [Concomitant]
  8. IMDUR DEPOT [Concomitant]
  9. METOPROLOL SUCCINATE [Concomitant]

REACTIONS (4)
  - CONFUSIONAL STATE [None]
  - DIARRHOEA [None]
  - HYPOKALAEMIA [None]
  - WEIGHT DECREASED [None]
